FAERS Safety Report 15819173 (Version 1)
Quarter: 2019Q1

REPORT INFORMATION
  Report Type: Spontaneous
  Country: US (occurrence: US)
  Receive Date: 20190114
  Receipt Date: 20190114
  Transmission Date: 20190417
  Serious: No
  Sender: FDA-Public Use
  Company Number: US-ROCHE-2216819

PATIENT
  Age: 73 Year
  Sex: Female

DRUGS (8)
  1. ATORVASTATIN [Concomitant]
     Active Substance: ATORVASTATIN
     Dosage: HS ;ONGOING: YES
     Route: 048
  2. ISOSORBIDE MONONITRATE. [Concomitant]
     Active Substance: ISOSORBIDE MONONITRATE
     Dosage: ONGOING: YES
     Route: 048
  3. METOCLOPRAMIDE. [Concomitant]
     Active Substance: METOCLOPRAMIDE
     Indication: NAUSEA
     Dosage: ONGOING: YES
     Route: 065
  4. TECENTRIQ [Suspect]
     Active Substance: ATEZOLIZUMAB
     Indication: TRANSITIONAL CELL CARCINOMA
     Dosage: ONGOING: YES
     Route: 041
     Dates: start: 20171026
  5. CARVEDILOL. [Concomitant]
     Active Substance: CARVEDILOL
     Dosage: ONGOING: YES
     Route: 048
  6. ASPIRIN. [Concomitant]
     Active Substance: ASPIRIN
     Dosage: ONGOING: YES
     Route: 048
  7. BASAGLAR [Concomitant]
     Active Substance: INSULIN GLARGINE
     Dosage: ONGOING: YES
     Route: 058
  8. AMLODIPINE [Concomitant]
     Active Substance: AMLODIPINE BESYLATE
     Dosage: ONGOING: YES
     Route: 048

REACTIONS (3)
  - Glomerular filtration rate decreased [Recovered/Resolved]
  - Ejection fraction decreased [Unknown]
  - Blood creatinine increased [Unknown]

NARRATIVE: CASE EVENT DATE: 20181106
